FAERS Safety Report 11757924 (Version 1)
Quarter: 2015Q4

REPORT INFORMATION
  Report Type: Spontaneous
  Country: GB (occurrence: GB)
  Receive Date: 20151120
  Receipt Date: 20151120
  Transmission Date: 20160304
  Serious: Yes (Hospitalization, Other)
  Sender: FDA-Public Use
  Company Number: GB-MALLINCKRODT-T201505265

PATIENT
  Age: 26 Year
  Sex: Female

DRUGS (5)
  1. SODIUM IODIDE (I 131) CAPSULES T [Suspect]
     Active Substance: SODIUM IODIDE I-131
     Indication: RADIOACTIVE IODINE THERAPY
     Dosage: 533 MBQ, SINGLE
     Route: 065
     Dates: start: 20110916, end: 20110916
  2. PROPYLTHIOURACIL. [Concomitant]
     Active Substance: PROPYLTHIOURACIL
     Dosage: 200 MG, BID
  3. PROPYLTHIOURACIL. [Concomitant]
     Active Substance: PROPYLTHIOURACIL
     Dosage: 200 MG, QD
     Dates: start: 201110, end: 201112
  4. PROPYLTHIOURACIL. [Concomitant]
     Active Substance: PROPYLTHIOURACIL
     Dosage: 300 MG, BID
  5. PROPYLTHIOURACIL. [Concomitant]
     Active Substance: PROPYLTHIOURACIL
     Dosage: 800 MG, QD
     Dates: start: 201106, end: 201109

REACTIONS (2)
  - Hypothyroidism [Recovered/Resolved]
  - Acute psychosis [Recovered/Resolved]

NARRATIVE: CASE EVENT DATE: 20111207
